FAERS Safety Report 9901722 (Version 1)
Quarter: 2014Q1

REPORT INFORMATION
  Report Type: Spontaneous
  Country: FR (occurrence: FR)
  Receive Date: 20140217
  Receipt Date: 20140217
  Transmission Date: 20141002
  Serious: Yes (Hospitalization)
  Sender: FDA-Public Use
  Company Number: PHHY2014FR017199

PATIENT
  Age: 61 Year
  Sex: Male

DRUGS (2)
  1. 5-FLUOROURACIL [Suspect]
     Indication: OROPHARYNGEAL CANCER
     Dosage: 1900 MG, UNK
     Route: 042
  2. CISPLATIN [Suspect]
     Indication: OROPHARYNGEAL CANCER
     Dosage: 47.5 MG, UNK
     Route: 042

REACTIONS (6)
  - Cerebral infarction [Unknown]
  - Hemiparesis [Unknown]
  - Cerebellar syndrome [Unknown]
  - Thalamic infarction [Unknown]
  - Visual field defect [Unknown]
  - Cerebellar infarction [Unknown]
